FAERS Safety Report 7436715-0 (Version None)
Quarter: 2011Q2

REPORT INFORMATION
  Report Type: 
  Country: None (occurrence: None)
  Receive Date: 20110426
  Receipt Date: 20110413
  Transmission Date: 20111010
  Serious: Yes (Hospitalization)
  Sender: FDA-Public Use
  Company Number: US-ENDO PHARMACEUTICALS INC.-OPER20110047

PATIENT
  Sex: Female

DRUGS (5)
  1. OPANA ER [Suspect]
     Dosage: UNK
     Route: 048
  2. ESTROGENIC SUBSTANCE [Concomitant]
  3. XANAX [Concomitant]
  4. GABITRIL [Concomitant]
  5. OPANA [Suspect]
     Dosage: UNK
     Route: 048

REACTIONS (1)
  - CARDIAC FAILURE CONGESTIVE [None]
